FAERS Safety Report 9971137 (Version 1)
Quarter: 2014Q1

REPORT INFORMATION
  Report Type: Spontaneous
  Country: US (occurrence: None)
  Receive Date: 20140304
  Receipt Date: 20140304
  Transmission Date: 20141002
  Serious: Yes (Hospitalization)
  Sender: FDA-Public Use
  Company Number: 2014HINLIT0172

PATIENT
  Age: 72 Year
  Sex: Male

DRUGS (3)
  1. LITHIUM (LITHIUM) UNKNOWN [Suspect]
     Indication: BIPOLAR DISORDER
  2. ASPIRINE (ASPIRINE) [Suspect]
     Indication: PRODUCT USED FOR UNKNOWN INDICATION
  3. LISINOPRIL (LISINOPRIL) [Suspect]
     Indication: PRODUCT USED FOR UNKNOWN INDICATION

REACTIONS (6)
  - Toxicity to various agents [None]
  - Hypotension [None]
  - Hypothermia [None]
  - Bradycardia [None]
  - Apnoea [None]
  - Hyponatraemia [None]
